FAERS Safety Report 4637666-7 (Version None)
Quarter: 2005Q2

REPORT INFORMATION
  Report Type: 
  Country: None (occurrence: None)
  Receive Date: 20050418
  Receipt Date: 20050408
  Transmission Date: 20051028
  Serious: Yes (Hospitalization)
  Sender: FDA-Public Use
  Company Number: PHBS2005JP05068

PATIENT
  Age: 64 Year
  Sex: Male

DRUGS (17)
  1. NEORAL [Suspect]
     Indication: NEPHROTIC SYNDROME
     Route: 048
     Dates: start: 20050205, end: 20050219
  2. NEORAL [Suspect]
     Dosage: 150 MG/D
     Route: 048
     Dates: start: 20050220, end: 20050408
  3. LOCHOL [Suspect]
     Route: 065
     Dates: end: 20050408
  4. SIGMART [Suspect]
     Route: 065
     Dates: end: 20050408
  5. DIFLUCAN [Suspect]
     Route: 065
     Dates: end: 20050408
  6. ASPIRIN [Suspect]
     Route: 065
     Dates: end: 20050408
  7. PANALDINE [Suspect]
     Route: 065
     Dates: end: 20050408
  8. ALTAT [Concomitant]
  9. PERSANTIN [Concomitant]
  10. MUCOSTA [Concomitant]
  11. ALDACTONE-A [Concomitant]
  12. PRERAN [Concomitant]
  13. ZYLORIC [Concomitant]
  14. TENORMIN [Concomitant]
  15. NU-LOTAN [Concomitant]
  16. PREDONINE [Concomitant]
  17. LASIX [Concomitant]

REACTIONS (4)
  - DRUG LEVEL INCREASED [None]
  - GRANULOCYTOPENIA [None]
  - THROMBOCYTOPENIA [None]
  - WHITE BLOOD CELL COUNT DECREASED [None]
